FAERS Safety Report 14313329 (Version 1)
Quarter: 2017Q4

REPORT INFORMATION
  Report Type: Spontaneous
  Country: US (occurrence: US)
  Receive Date: 20171220
  Receipt Date: 20171220
  Transmission Date: 20180321
  Serious: Yes (Other)
  Sender: FDA-Public Use
  Company Number: None

PATIENT
  Age: 56 Year
  Sex: Male

DRUGS (15)
  1. AMITRIPTYLINE [Concomitant]
     Active Substance: AMITRIPTYLINE
  2. LYRICA [Concomitant]
     Active Substance: PREGABALIN
  3. METFORMIN [Concomitant]
     Active Substance: METFORMIN HYDROCHLORIDE
  4. DEXILANT [Concomitant]
     Active Substance: DEXLANSOPRAZOLE
  5. COMBIVENT [Concomitant]
     Active Substance: ALBUTEROL SULFATE\IPRATROPIUM BROMIDE
  6. PRAVASTATIN. [Suspect]
     Active Substance: PRAVASTATIN
     Indication: HYPERCHOLESTEROLAEMIA
     Route: 048
     Dates: start: 20171020, end: 20171220
  7. LANTUS [Concomitant]
     Active Substance: INSULIN GLARGINE
  8. REXULTI [Concomitant]
     Active Substance: BREXPIPRAZOLE
  9. XARELTO [Concomitant]
     Active Substance: RIVAROXABAN
  10. GENVOYA [Suspect]
     Active Substance: COBICISTAT\ELVITEGRAVIR\EMTRICITABINE\TENOFOVIR ALAFENAMIDE FUMARATE
     Indication: HIV INFECTION
     Route: 048
     Dates: start: 20170421, end: 20171220
  11. METOPROLOL ER SUCCINATE [Concomitant]
     Active Substance: METOPROLOL SUCCINATE
  12. DULOXETINE DR [Concomitant]
     Active Substance: DULOXETINE
  13. NORCO [Concomitant]
     Active Substance: ACETAMINOPHEN\HYDROCODONE BITARTRATE
  14. PALIPERIDONE ER [Concomitant]
     Active Substance: PALIPERIDONE
  15. ROPINEROLE [Concomitant]
     Active Substance: ROPINIROLE

REACTIONS (2)
  - Myalgia [None]
  - Chromaturia [None]

NARRATIVE: CASE EVENT DATE: 20171220
